FAERS Safety Report 4601948-5 (Version None)
Quarter: 2005Q1

REPORT INFORMATION
  Report Type: 
  Country: None (occurrence: None)
  Receive Date: 20050131
  Receipt Date: 20041217
  Transmission Date: 20050727
  Serious: Yes (Hospitalization, Other)
  Sender: FDA-Public Use
  Company Number: USA041286593

PATIENT
  Age: 74 Year
  Sex: Female

DRUGS (2)
  1. ZYPREXA [Suspect]
     Indication: AGITATION
     Dosage: 5 MG
  2. ZYPREXA [Suspect]
     Indication: DEMENTIA
     Dosage: 5 MG

REACTIONS (2)
  - ATRIAL FLUTTER [None]
  - LOSS OF CONSCIOUSNESS [None]
